FAERS Safety Report 22790544 (Version 6)
Quarter: 2024Q2

REPORT INFORMATION
  Report Type: Report from Study
  Country: IT (occurrence: IT)
  Receive Date: 20230805
  Receipt Date: 20240605
  Transmission Date: 20240716
  Serious: Yes (Death, Hospitalization)
  Sender: FDA-Public Use
  Company Number: IT-ASGENIA-AS2023004997

PATIENT
  Age: 17 Year
  Sex: Female
  Weight: 56 kg

DRUGS (21)
  1. ONDANSETRON [Suspect]
     Active Substance: ONDANSETRON
     Indication: Ewing^s sarcoma
     Dates: start: 2022
  2. PREGABALIN [Suspect]
     Active Substance: PREGABALIN
     Indication: Pain
     Dates: start: 2022
  3. MIDAZOLAM HYDROCHLORIDE [Suspect]
     Active Substance: MIDAZOLAM HYDROCHLORIDE
     Indication: Palliative sedation
  4. ACETAMINOPHEN [Suspect]
     Active Substance: ACETAMINOPHEN
     Indication: Ewing^s sarcoma
     Dates: start: 2022
  5. DULOXETINE [Suspect]
     Active Substance: DULOXETINE
     Indication: Ewing^s sarcoma
     Dates: start: 2022
  6. DEXAMETHASONE [Suspect]
     Active Substance: DEXAMETHASONE
     Indication: Pain
     Dates: start: 2022
  7. FENTANYL [Suspect]
     Active Substance: FENTANYL\FENTANYL CITRATE
     Indication: Pain
     Dates: start: 2022
  8. MORPHINE [Suspect]
     Active Substance: MORPHINE
     Indication: Pain
     Dosage: AS NEEDED
     Dates: start: 2022
  9. COTRIMOXAZOLE [Suspect]
     Active Substance: SULFAMETHOXAZOLE\TRIMETHOPRIM
     Indication: Ewing^s sarcoma
     Dates: start: 2022
  10. OMEPRAZOLE [Suspect]
     Active Substance: DONEPEZIL HYDROCHLORIDE\OMEPRAZOLE\OMEPRAZOLE MAGNESIUM
     Indication: Ewing^s sarcoma
     Dates: start: 2022
  11. CLOZAPINE [Suspect]
     Active Substance: CLOZAPINE
     Indication: Psychotic disorder
  12. CLONIDINE [Suspect]
     Active Substance: CLONIDINE
     Indication: Palliative sedation
  13. PREGABALIN [Suspect]
     Active Substance: PREGABALIN
     Indication: Palliative care
     Dosage: UNK(INFUSION) INTRAVENOUS BOLUSES
  14. COTRIMOXAZOLE [Suspect]
     Active Substance: SULFAMETHOXAZOLE\TRIMETHOPRIM
     Indication: Palliative care
     Dates: start: 2022
  15. PREGABALIN [Suspect]
     Active Substance: PREGABALIN
     Indication: Palliative care
     Dosage: UNKNOWN, AS NEEDED
     Dates: start: 2022
  16. PREGABALIN [Suspect]
     Active Substance: PREGABALIN
     Indication: Pain
     Dosage: UNKNOWN, AS NEEDED
     Dates: start: 2022
  17. ONDANSETRON [Suspect]
     Active Substance: ONDANSETRON
     Indication: Pain
     Dates: start: 2022
  18. MORPHINE [Suspect]
     Active Substance: MORPHINE
     Indication: Ewing^s sarcoma
     Dosage: AS NEEDED
     Dates: start: 2022
  19. MORPHINE [Suspect]
     Active Substance: MORPHINE
     Indication: Ewing^s sarcoma
     Dosage: IMMEDIATE-RELEASE, AS NECESSARY
     Dates: start: 2022
  20. CLOZAPINE [Suspect]
     Active Substance: CLOZAPINE
     Indication: Psychotic disorder
     Dosage: 12.5 MG X 2 /DAY
  21. CLOZAPINE [Suspect]
     Active Substance: CLOZAPINE
     Indication: Psychotic disorder
     Dosage: 100 MG

REACTIONS (15)
  - Movement disorder [Recovering/Resolving]
  - Dizziness [Recovering/Resolving]
  - Pyrexia [Unknown]
  - Psychomotor hyperactivity [Unknown]
  - Anxiety [Unknown]
  - Nausea [Recovering/Resolving]
  - Pain [Fatal]
  - Vomiting [Unknown]
  - Dyspnoea [Unknown]
  - Urine output decreased [Unknown]
  - Decreased appetite [Unknown]
  - Asthenia [Unknown]
  - Haematuria [Unknown]
  - Feeling of despair [Unknown]
  - Weight decreased [Unknown]

NARRATIVE: CASE EVENT DATE: 20220101
